FAERS Safety Report 8306264-6 (Version None)
Quarter: 2012Q2

REPORT INFORMATION
  Report Type: 
  Country: None (occurrence: None)
  Receive Date: 20120423
  Receipt Date: 20120416
  Transmission Date: 20120825
  Serious: Yes (Hospitalization, Other)
  Sender: FDA-Public Use
  Company Number: CA-ROCHE-GNE276727

PATIENT
  Sex: Female
  Weight: 36.039 kg

DRUGS (14)
  1. XOLAIR [Suspect]
     Indication: ASTHMA
     Dosage: 375 MG, Q2W
     Route: 058
     Dates: start: 20081118
  2. SYNTHROID [Concomitant]
     Indication: PRODUCT USED FOR UNKNOWN INDICATION
     Route: 065
  3. BUDESONIDE [Concomitant]
     Indication: PRODUCT USED FOR UNKNOWN INDICATION
     Route: 065
  4. XOLAIR [Suspect]
     Dosage: 375 MG, Q2W
     Route: 058
     Dates: start: 20100222
  5. XOLAIR [Suspect]
     Dosage: 375 MG, Q2W
     Route: 058
     Dates: start: 20091214
  6. XOLAIR [Suspect]
     Dosage: 375 MG, Q2W
     Route: 058
     Dates: start: 20091228
  7. FORMOTEROL FUMARATE [Concomitant]
     Indication: PRODUCT USED FOR UNKNOWN INDICATION
     Route: 065
  8. ANTIBIOTICS (NOT SPECIFIED) [Concomitant]
     Indication: PRODUCT USED FOR UNKNOWN INDICATION
     Route: 065
  9. XOLAIR [Suspect]
     Dosage: 375 MG, Q2W
     Dates: start: 20091130
  10. NASONEX [Concomitant]
     Indication: PRODUCT USED FOR UNKNOWN INDICATION
     Route: 065
  11. XOLAIR [Suspect]
     Dosage: 375 MG, Q2W
     Route: 058
     Dates: start: 20100308
  12. SYMBICORT [Concomitant]
     Indication: PRODUCT USED FOR UNKNOWN INDICATION
     Route: 065
  13. ALVESCO [Concomitant]
     Indication: PRODUCT USED FOR UNKNOWN INDICATION
     Route: 065
  14. SINGULAIR [Concomitant]
     Indication: PRODUCT USED FOR UNKNOWN INDICATION
     Route: 065

REACTIONS (27)
  - BONE PAIN [None]
  - ARTHRALGIA [None]
  - MUSCLE SPASMS [None]
  - PAIN [None]
  - MYALGIA [None]
  - NAUSEA [None]
  - HEADACHE [None]
  - BURNING SENSATION [None]
  - ECCHYMOSIS [None]
  - FATIGUE [None]
  - PHOTOPHOBIA [None]
  - OEDEMA PERIPHERAL [None]
  - DYSPHONIA [None]
  - PARAESTHESIA [None]
  - COUGH [None]
  - PULMONARY CONGESTION [None]
  - HYPOAESTHESIA [None]
  - PYREXIA [None]
  - BRONCHITIS [None]
  - ASTHMA [None]
  - BLOOD PRESSURE DECREASED [None]
  - BACK PAIN [None]
  - MIGRAINE [None]
  - PULMONARY FUNCTION TEST ABNORMAL [None]
  - PRODUCTIVE COUGH [None]
  - HAEMATOMA [None]
  - MALAISE [None]
